FAERS Safety Report 25272475 (Version 1)
Quarter: 2025Q2

REPORT INFORMATION
  Report Type: Spontaneous
  Country: US (occurrence: US)
  Receive Date: 20250506
  Receipt Date: 20250506
  Transmission Date: 20250716
  Serious: No
  Sender: QOL
  Company Number: US-QOL Medical, LLC-2176226

PATIENT
  Age: 52 Year
  Sex: Male

DRUGS (1)
  1. SUCRAID [Suspect]
     Active Substance: SACROSIDASE
     Dates: start: 20240521, end: 20240601

REACTIONS (1)
  - Atrial fibrillation [Unknown]

NARRATIVE: CASE EVENT DATE: 20240525
